FAERS Safety Report 5896466-0 (Version None)
Quarter: 2008Q3

REPORT INFORMATION
  Report Type: 
  Country: None (occurrence: None)
  Receive Date: 20080924
  Receipt Date: 20071024
  Transmission Date: 20090109
  Serious: No
  Sender: FDA-Public Use
  Company Number: US-BAYER-200711985BWH

PATIENT
  Age: 48 Year
  Sex: Female

DRUGS (6)
  1. AVELOX [Suspect]
     Indication: URINARY TRACT INFECTION
     Dosage: TOTAL DAILY DOSE: 400 MG  UNIT DOSE: 400 MG
     Route: 048
     Dates: start: 20070404, end: 20070703
  2. AVELOX [Suspect]
     Dosage: TOTAL DAILY DOSE: 400 MG  UNIT DOSE: 400 MG
     Route: 048
     Dates: start: 20070101
  3. LEVAQUIN [Concomitant]
  4. ATENOLOL [Concomitant]
  5. ZANTAC [Concomitant]
  6. SUPRAX [Concomitant]

REACTIONS (4)
  - MENSTRUAL DISCOMFORT [None]
  - MENSTRUAL DISORDER [None]
  - MENSTRUATION IRREGULAR [None]
  - POLLAKIURIA [None]
